FAERS Safety Report 24146772 (Version 1)
Quarter: 2024Q3

REPORT INFORMATION
  Report Type: Spontaneous
  Country: IN (occurrence: IN)
  Receive Date: 20240729
  Receipt Date: 20240729
  Transmission Date: 20241017
  Serious: Yes (Hospitalization, Other)
  Sender: DR REDDYS
  Company Number: IN-RDY-LIT/IND/24/0010799

PATIENT
  Age: 73 Year
  Sex: Male

DRUGS (4)
  1. CLOPIDOGREL [Suspect]
     Active Substance: CLOPIDOGREL BISULFATE
     Indication: Transient ischaemic attack
  2. AMLODIPINE [Suspect]
     Active Substance: AMLODIPINE BESYLATE
     Indication: Product used for unknown indication
     Dosage: 10 MG DAILY
  3. ASPIRIN [Concomitant]
     Active Substance: ASPIRIN
     Indication: Transient ischaemic attack
  4. ATORVASTATIN [Concomitant]
     Active Substance: ATORVASTATIN
     Indication: Transient ischaemic attack

REACTIONS (3)
  - Insulin autoimmune syndrome [Recovered/Resolved]
  - Product use in unapproved indication [Unknown]
  - Transient ischaemic attack [Unknown]
